FAERS Safety Report 7343794-8 (Version None)
Quarter: 2011Q1

REPORT INFORMATION
  Report Type: 
  Country: None (occurrence: None)
  Receive Date: 20110308
  Receipt Date: 20110308
  Transmission Date: 20110831
  Serious: Yes (Other)
  Sender: FDA-Public Use
  Company Number: None

PATIENT
  Age: 49 Year
  Sex: Female

DRUGS (1)
  1. TOPIRAMATE [Suspect]
     Indication: HEADACHE
     Dosage: 100MG TWICE DAILY PO
     Route: 048
     Dates: start: 20100605, end: 20110304

REACTIONS (2)
  - URTICARIA [None]
  - OEDEMA PERIPHERAL [None]
